FAERS Safety Report 8215892 (Version 6)
Quarter: 2012Q4

REPORT INFORMATION
  Report Type: Report from Study
  Country: CZ (occurrence: CZ)
  Receive Date: 20111031
  Receipt Date: 20120830
  Transmission Date: 20130627
  Serious: Yes (Life-Threatening, Hospitalization)
  Sender: FDA-Public Use
  Company Number: CZ-SANOFI-AVENTIS-2011SA070441

PATIENT
  Age: 74 Year
  Sex: Male
  Weight: 110 kg

DRUGS (4)
  1. ELIGARD [Suspect]
     Indication: PROSTATE CANCER
     Route: 058
     Dates: start: 20100527, end: 20100527
  2. ELIGARD [Suspect]
     Indication: PROSTATE CANCER
     Route: 058
     Dates: start: 20110719, end: 20110719
  3. CASODEX [Suspect]
     Indication: PROSTATE CANCER
     Route: 048
     Dates: start: 20100527, end: 20100627
  4. ANTIHYPERTENSIVES [Concomitant]
     Dosage: baseline, week 1, 13, 25, 31, 37, 49

REACTIONS (1)
  - Pulmonary embolism [Recovered/Resolved]
